FAERS Safety Report 13640036 (Version 1)
Quarter: 2017Q2

REPORT INFORMATION
  Report Type: Spontaneous
  Country: US (occurrence: US)
  Receive Date: 20170609
  Receipt Date: 20170609
  Transmission Date: 20170830
  Serious: No
  Sender: FDA-Public Use
  Company Number: US-ROCHE-796813

PATIENT
  Sex: Female

DRUGS (1)
  1. KLONOPIN [Suspect]
     Active Substance: CLONAZEPAM
     Indication: PRODUCT USED FOR UNKNOWN INDICATION
     Dosage: TAKES HALF TABLET OF 1 MG AND  0.5 MG TO GET 0.75 MG
     Route: 065

REACTIONS (3)
  - Rash macular [Unknown]
  - Muscle spasms [Unknown]
  - Abdominal discomfort [Unknown]
